FAERS Safety Report 14908034 (Version 3)
Quarter: 2018Q2

REPORT INFORMATION
  Report Type: Report from Study
  Country: US (occurrence: US)
  Receive Date: 20180517
  Receipt Date: 20180524
  Transmission Date: 20180711
  Serious: Yes (Hospitalization)
  Sender: FDA-Public Use
  Company Number: US-GILEAD-2018-0331702

PATIENT
  Age: 49 Year
  Sex: Male

DRUGS (3)
  1. AMBRISENTAN [Suspect]
     Active Substance: AMBRISENTAN
     Indication: PRODUCT USED FOR UNKNOWN INDICATION
     Dosage: 10 MG, QD
     Route: 065
     Dates: start: 20151216
  2. ADCIRCA [Concomitant]
     Active Substance: TADALAFIL
  3. REMODULIN [Concomitant]
     Active Substance: TREPROSTINIL

REACTIONS (9)
  - Chest pain [Unknown]
  - Dyspnoea exertional [Unknown]
  - Haematochezia [Recovering/Resolving]
  - Balance disorder [Unknown]
  - Rectal haemorrhage [Unknown]
  - Dizziness [Unknown]
  - Hypoaesthesia [Unknown]
  - Epistaxis [Recovered/Resolved]
  - Laceration [Unknown]

NARRATIVE: CASE EVENT DATE: 20180412
